FAERS Safety Report 21724101 (Version 3)
Quarter: 2022Q4

REPORT INFORMATION
  Report Type: Spontaneous
  Country: US (occurrence: US)
  Receive Date: 20221213
  Receipt Date: 20221221
  Transmission Date: 20230113
  Serious: Yes (Other)
  Sender: FDA-Public Use
  Company Number: US-AMGEN-USASP2022213813

PATIENT
  Age: 59 Year
  Sex: Female

DRUGS (3)
  1. OTEZLA [Suspect]
     Active Substance: APREMILAST
     Indication: Multiple sclerosis
     Dosage: 30 MILLIGRAM, BID
     Route: 048
     Dates: start: 20220621
  2. OTEZLA [Suspect]
     Active Substance: APREMILAST
     Indication: Illness
  3. AVONEX [Concomitant]
     Active Substance: INTERFERON BETA-1A
     Dosage: 30 MCG/0.5ML I =4SYR

REACTIONS (3)
  - Multiple sclerosis [Not Recovered/Not Resolved]
  - Limb discomfort [Not Recovered/Not Resolved]
  - Off label use [Unknown]

NARRATIVE: CASE EVENT DATE: 20220101
